FAERS Safety Report 19261024 (Version 5)
Quarter: 2021Q3

REPORT INFORMATION
  Report Type: Report from Study
  Country: CN (occurrence: CN)
  Receive Date: 20210515
  Receipt Date: 20210729
  Transmission Date: 20211014
  Serious: Yes (Hospitalization, Other)
  Sender: FDA-Public Use
  Company Number: CN-TAKEDA-2021TUS026187

PATIENT
  Age: 57 Year
  Sex: Female
  Weight: 85 kg

DRUGS (9)
  1. IXAZOMIB [Suspect]
     Active Substance: IXAZOMIB
     Indication: PLASMA CELL MYELOMA
     Dosage: 4 MILLIGRAM, 1/WEEK
     Route: 048
     Dates: start: 20210119, end: 20210427
  2. LEUCOGEN [Concomitant]
     Active Substance: LEUCOGEN
     Indication: PROPHYLAXIS
     Dosage: 20 MILLIGRAM, TID
     Route: 048
     Dates: start: 20210322, end: 20210406
  3. LEVOGLUTAMIDE;SODIUM GUALENATE [Concomitant]
     Indication: PROPHYLAXIS
     Dosage: 0.67 MILLIGRAM, TID
     Route: 048
     Dates: start: 20210322, end: 20210326
  4. DIAMMONIUM GLYCYRRHIZINATE [Concomitant]
     Active Substance: HERBALS\DIAMMONIUM GLYCYRRHIZINATE
     Indication: PROPHYLAXIS
     Dosage: 150 MILLIGRAM, TID
     Route: 048
     Dates: start: 20210322, end: 20210324
  5. HYDROTALCITE [Concomitant]
     Active Substance: HYDROTALCITE
     Indication: PROPHYLAXIS
     Dosage: 0.5 MILLIGRAM, TID
     Route: 048
     Dates: start: 20210322, end: 20210406
  6. LITHIUM CARBONATE. [Concomitant]
     Active Substance: LITHIUM CARBONATE
     Indication: MENTAL DISORDER
     Dosage: 0.25 GRAM, TID
     Route: 048
     Dates: start: 2011
  7. ONDANSETRON HYDROCHLORIDE. [Concomitant]
     Active Substance: ONDANSETRON HYDROCHLORIDE
     Indication: PROPHYLAXIS OF NAUSEA AND VOMITING
     Dosage: 4 MILLIGRAM, TID
     Route: 048
     Dates: start: 20210322, end: 20210324
  8. CLOZAPINE. [Concomitant]
     Active Substance: CLOZAPINE
     Indication: MENTAL DISORDER
     Dosage: 25 MILLIGRAM, BID
     Route: 048
     Dates: start: 2011
  9. PREGABALIN. [Concomitant]
     Active Substance: PREGABALIN
     Indication: ANALGESIC THERAPY
     Dosage: 75 MILLIGRAM, BID
     Route: 048
     Dates: start: 20210322, end: 20210327

REACTIONS (7)
  - Productive cough [Recovered/Resolved]
  - Neutrophil count decreased [Not Recovered/Not Resolved]
  - Hypokalaemia [Recovered/Resolved]
  - Herpes virus infection [Recovering/Resolving]
  - Pneumonia [Recovered/Resolved]
  - Platelet count decreased [Recovered/Resolved]
  - Constipation [Recovered/Resolved]

NARRATIVE: CASE EVENT DATE: 20210418
